FAERS Safety Report 9298345 (Version 1)
Quarter: 2013Q2

REPORT INFORMATION
  Report Type: Spontaneous
  Country: US (occurrence: US)
  Receive Date: 20130520
  Receipt Date: 20130520
  Transmission Date: 20140414
  Serious: Yes (Other)
  Sender: FDA-Public Use
  Company Number: US-AMGEN-USASP2013034765

PATIENT
  Age: 60 Year
  Sex: Female

DRUGS (6)
  1. CYTOXAN [Concomitant]
     Dosage: UNK
     Dates: start: 201301
  2. TAXOL [Concomitant]
     Dosage: UNK
     Dates: start: 201301
  3. HERCEPTIN [Concomitant]
     Dosage: UNK
  4. TAMOXIFEN [Concomitant]
     Dosage: UNK
     Dates: start: 201301
  5. PROLIA [Suspect]
     Indication: OSTEOPOROSIS POSTMENOPAUSAL
     Dosage: UNK
  6. ADRIAMYCIN                         /00330901/ [Concomitant]
     Dosage: UNK
     Dates: start: 201301

REACTIONS (4)
  - Stress fracture [Unknown]
  - Cough [Unknown]
  - Bone density decreased [Unknown]
  - Drug ineffective [Unknown]
